FAERS Safety Report 17772246 (Version 1)
Quarter: 2020Q2

REPORT INFORMATION
  Report Type: Report from Study
  Country: IL (occurrence: IL)
  Receive Date: 20200512
  Receipt Date: 20200512
  Transmission Date: 20200714
  Serious: Yes (Life-Threatening, Hospitalization)
  Sender: FDA-Public Use
  Company Number: IL-CELGENEUS-ISR-20171208133

PATIENT
  Age: 30 Year
  Sex: Male

DRUGS (20)
  1. DESFERAL [Concomitant]
     Active Substance: DEFEROXAMINE MESYLATE
     Indication: IRON OVERLOAD
     Dosage: 3500 MILLIGRAM
     Route: 048
     Dates: start: 20170622, end: 20180123
  2. DESFERAL [Concomitant]
     Active Substance: DEFEROXAMINE MESYLATE
     Indication: CHELATION THERAPY
  3. CLEXAN [Concomitant]
     Active Substance: ENOXAPARIN SODIUM
     Indication: DEEP VEIN THROMBOSIS
     Dosage: 100 MILLIGRAM
     Route: 058
     Dates: start: 20171224, end: 20171230
  4. NEXIUM [Concomitant]
     Active Substance: ESOMEPRAZOLE MAGNESIUM
     Indication: PRODUCT USED FOR UNKNOWN INDICATION
     Dosage: 80 MILLIGRAM
     Route: 048
     Dates: start: 20171219, end: 20171219
  5. FERRIPROX [Concomitant]
     Active Substance: DEFERIPRONE
     Indication: IRON OVERLOAD
     Dosage: 6000 MILLIGRAM
     Route: 048
     Dates: start: 20170330, end: 20171220
  6. FOLIC ACID. [Concomitant]
     Active Substance: FOLIC ACID
     Indication: PROPHYLAXIS
     Dosage: 1000 MILLIGRAM
     Route: 048
     Dates: start: 20170105
  7. LUSPATERCEPT. [Suspect]
     Active Substance: LUSPATERCEPT
     Dosage: 1 MILLIGRAM/KILOGRAM
     Route: 058
     Dates: start: 20171214
  8. PROTOCIDE [Concomitant]
     Indication: HELICOBACTER GASTRITIS
     Dosage: 1000 MILLIGRAM
     Route: 048
     Dates: start: 20171219, end: 20171219
  9. EZOMEPRAZOL [Concomitant]
     Indication: HELICOBACTER INFECTION
     Route: 065
  10. FERRIPROX [Concomitant]
     Active Substance: DEFERIPRONE
     Indication: CHELATION THERAPY
  11. CLEXAN [Concomitant]
     Active Substance: ENOXAPARIN SODIUM
     Indication: PROPHYLAXIS
     Dosage: 100 MILLIGRAM
     Route: 058
     Dates: start: 20170622, end: 20171220
  12. CLARITHROMYCIN. [Suspect]
     Active Substance: CLARITHROMYCIN
     Indication: HELICOBACTER INFECTION
     Route: 065
  13. TINIDAZOLE. [Concomitant]
     Active Substance: TINIDAZOLE
     Indication: HELICOBACTER INFECTION
     Route: 065
  14. MOXYPEN [Concomitant]
     Active Substance: AMOXICILLIN
     Indication: HELICOBACTER GASTRITIS
     Dosage: 2000 MILLIGRAM
     Route: 048
     Dates: start: 20171219, end: 20171219
  15. KARIN [Concomitant]
     Indication: HELICOBACTER GASTRITIS
     Dosage: 1000 MILLIGRAM
     Route: 048
     Dates: start: 20171219, end: 20171219
  16. AMOXYCILLIN [Concomitant]
     Active Substance: AMOXICILLIN
     Indication: HELICOBACTER INFECTION
     Route: 065
  17. LUSPATERCEPT. [Suspect]
     Active Substance: LUSPATERCEPT
     Indication: THALASSAEMIA BETA
     Dosage: 1 MILLIGRAM/KILOGRAM
     Route: 058
     Dates: start: 20161013
  18. VITAMIN D [Concomitant]
     Active Substance: VITAMIN D NOS
     Indication: PROPHYLAXIS
     Route: 048
     Dates: start: 20170330
  19. LOSEC [Concomitant]
     Active Substance: OMEPRAZOLE
     Indication: GASTRITIS EROSIVE
     Dosage: 40 MILLIGRAM
     Route: 048
     Dates: start: 20171008
  20. OMEPRADEX [Concomitant]
     Active Substance: OMEPRAZOLE
     Indication: GASTRITIS EROSIVE
     Route: 048
     Dates: start: 20171220, end: 20171220

REACTIONS (4)
  - Hepatitis acute [Recovered/Resolved]
  - Drug-induced liver injury [Recovered/Resolved]
  - Cholangitis [Recovered/Resolved]
  - Septic shock [Recovered/Resolved]

NARRATIVE: CASE EVENT DATE: 20171220
